FAERS Safety Report 9339671 (Version 1)
Quarter: 2013Q2

REPORT INFORMATION
  Report Type: Report from Study
  Country: DE (occurrence: DE)
  Receive Date: 20130610
  Receipt Date: 20130610
  Transmission Date: 20140414
  Serious: Yes (Life-Threatening)
  Sender: FDA-Public Use
  Company Number: DE-TEVA-403429GER

PATIENT
  Age: 62 Year
  Sex: Male
  Weight: 91 kg

DRUGS (6)
  1. RATIOGRASTIM [Suspect]
     Indication: NEUTROPENIA
     Dosage: DAY 5,6,7,8,9
     Route: 058
     Dates: start: 20130204, end: 20130208
  2. CISPLATIN [Suspect]
     Indication: MANTLE CELL LYMPHOMA
     Dosage: DAY 1
     Route: 042
     Dates: start: 20130131
  3. CYTOSINE ARABINOSIDE [Suspect]
     Indication: MANTLE CELL LYMPHOMA
     Dosage: DAY 2, 2X 4G
     Dates: start: 20130201
  4. CARDIOVASCULAR MEDICATION [Concomitant]
  5. GASTROINTESTINAL MEDICATION (ACID RELATED DISORDER) [Concomitant]
  6. DEXAMETHASONE [Concomitant]
     Indication: MANTLE CELL LYMPHOMA
     Dosage: DAY 1-4
     Dates: start: 20130131

REACTIONS (1)
  - Pancytopenia [Not Recovered/Not Resolved]
